FAERS Safety Report 6061906-3 (Version None)
Quarter: 2009Q1

REPORT INFORMATION
  Report Type: 
  Country: None (occurrence: None)
  Receive Date: 20090202
  Receipt Date: 20090122
  Transmission Date: 20090719
  Serious: Yes (Hospitalization)
  Sender: FDA-Public Use
  Company Number: PHBS2009IT00614

PATIENT
  Age: 56 Year
  Sex: Male

DRUGS (2)
  1. CARBAMAZEPINE [Suspect]
     Dosage: UNK
  2. VALPROATE SODIUM [Suspect]
     Dosage: UNK

REACTIONS (6)
  - ARTERIOGRAM CORONARY [None]
  - CONVULSION [None]
  - CORONARY ARTERY DISEASE [None]
  - PARTIAL SEIZURES [None]
  - SUPRAVENTRICULAR TACHYCARDIA [None]
  - TONIC CLONIC MOVEMENTS [None]
